FAERS Safety Report 8872804 (Version 2)
Quarter: 2012Q4

REPORT INFORMATION
  Report Type: 
  Country: US (occurrence: US)
  Receive Date: 20121029
  Receipt Date: 20121211
  Transmission Date: 20130627
  Serious: No
  Sender: FDA-Public Use
  Company Number: US-PFIZER INC-2012266473

PATIENT
  Sex: Female

DRUGS (1)
  1. LYRICA [Suspect]
     Dosage: 25 mg, UNK

REACTIONS (3)
  - Dizziness [Unknown]
  - Incorrect dose administered [Unknown]
  - Drug withdrawal syndrome [Unknown]
